FAERS Safety Report 4295224-0 (Version None)
Quarter: 2004Q1

REPORT INFORMATION
  Report Type: 
  Country: None (occurrence: None)
  Receive Date: 20040216
  Receipt Date: 20030416
  Transmission Date: 20041129
  Serious: No
  Sender: FDA-Public Use
  Company Number: US-GLAXOSMITHKLINE-A0405169A

PATIENT
  Age: 53 Year
  Sex: Female

DRUGS (6)
  1. LAMICTAL [Suspect]
     Dosage: 300MG PER DAY
     Route: 048
     Dates: start: 20030301
  2. PAXIL [Concomitant]
  3. EFFEXOR [Concomitant]
  4. BUSPAR [Concomitant]
  5. WELLBUTRIN [Concomitant]
     Route: 048
  6. TRAZODONE HCL [Concomitant]

REACTIONS (2)
  - ACNE [None]
  - RASH MACULAR [None]
